FAERS Safety Report 7234966-1 (Version None)
Quarter: 2011Q1

REPORT INFORMATION
  Report Type: 
  Country: None (occurrence: None)
  Receive Date: 20110120
  Receipt Date: 20101216
  Transmission Date: 20110831
  Serious: Yes (Hospitalization, Other)
  Sender: FDA-Public Use
  Company Number: US-BAYER-200939482NA

PATIENT
  Sex: Female
  Weight: 63.636 kg

DRUGS (8)
  1. COLAZAL [Concomitant]
     Dosage: 750 MG (DAILY DOSE), ,
     Dates: start: 20080610, end: 20100825
  2. PROTONIX [Concomitant]
     Dosage: 40 MG DAILY
  3. AZASAN [Concomitant]
     Dates: start: 20080528, end: 20090604
  4. PREDNISONE [Concomitant]
     Dosage: 10-60MG DAILY
     Dates: start: 19980101, end: 20060101
  5. LEXAPRO [Concomitant]
     Dosage: 10 MG (DAILY DOSE), ,
     Dates: start: 20080528, end: 20080906
  6. WARFARIN [Concomitant]
     Dates: end: 20070201
  7. LOW-OGESTREL [Concomitant]
     Indication: CONTRACEPTION
     Dates: start: 20060304
  8. YASMIN [Suspect]
     Indication: PRODUCT USED FOR UNKNOWN INDICATION
     Dates: start: 20040309, end: 20061001

REACTIONS (6)
  - PULMONARY EMBOLISM [None]
  - DYSPNOEA [None]
  - DEEP VEIN THROMBOSIS [None]
  - PAIN IN EXTREMITY [None]
  - PYREXIA [None]
  - PLEURITIC PAIN [None]
